FAERS Safety Report 4302352-X (Version None)
Quarter: 2004Q1

REPORT INFORMATION
  Report Type: 
  Country: None (occurrence: None)
  Receive Date: 20040220
  Receipt Date: 20040129
  Transmission Date: 20041129
  Serious: Yes (Hospitalization)
  Sender: FDA-Public Use
  Company Number: A03200400262

PATIENT
  Age: 69 Year
  Sex: Female

DRUGS (1)
  1. ELOXATIN [Suspect]
     Indication: COLON CANCER
     Dosage: 80 MG/M2 OTHER - INTRAVENOUS NOS
     Route: 042
     Dates: start: 20040121, end: 20040121

REACTIONS (1)
  - HYPERTHERMIA MALIGNANT [None]
